FAERS Safety Report 16914292 (Version 1)
Quarter: 2019Q4

REPORT INFORMATION
  Report Type: Report from Study
  Country: GB (occurrence: GB)
  Receive Date: 20191014
  Receipt Date: 20191014
  Transmission Date: 20200122
  Serious: Yes (Other)
  Sender: FDA-Public Use
  Company Number: GB-MYLANLABS-2019M1095060

PATIENT
  Sex: Female

DRUGS (4)
  1. LEVETIRACETAM. [Suspect]
     Active Substance: LEVETIRACETAM
     Dosage: 2500 MG DAILY
  2. CLOBAZAM. [Concomitant]
     Active Substance: CLOBAZAM
     Indication: PRODUCT USED FOR UNKNOWN INDICATION
     Dosage: UNK
  3. LEVETIRACETAM. [Suspect]
     Active Substance: LEVETIRACETAM
     Indication: SEIZURE
     Dosage: DOSE WAS UPPED
  4. EPILIM [Concomitant]
     Active Substance: VALPROATE SODIUM
     Indication: SEIZURE
     Dosage: UNK

REACTIONS (6)
  - Aggression [Recovering/Resolving]
  - Maternal exposure during pregnancy [Unknown]
  - Drug ineffective [Unknown]
  - Mood swings [Unknown]
  - Seizure [Not Recovered/Not Resolved]
  - Anger [Unknown]
